FAERS Safety Report 8598718-2 (Version None)
Quarter: 2012Q3

REPORT INFORMATION
  Report Type: 
  Country: None (occurrence: None)
  Receive Date: 20120816
  Receipt Date: 20120807
  Transmission Date: 20120928
  Serious: Yes (Other)
  Sender: FDA-Public Use
  Company Number: US-ASTRAZENECA-2012SE55963

PATIENT
  Age: 64 Year
  Sex: Female

DRUGS (1)
  1. SYMBICORT [Suspect]
     Route: 055

REACTIONS (8)
  - CATARACT [None]
  - TENDON RUPTURE [None]
  - MULTIPLE FRACTURES [None]
  - HYPERTENSION [None]
  - RIB FRACTURE [None]
  - STERNAL FRACTURE [None]
  - ULCER HAEMORRHAGE [None]
  - EYE DISORDER [None]
